FAERS Safety Report 21086990 (Version 1)
Quarter: 2022Q3

REPORT INFORMATION
  Report Type: Spontaneous
  Country: US (occurrence: US)
  Receive Date: 20220715
  Receipt Date: 20220715
  Transmission Date: 20221027
  Serious: Yes (Other)
  Sender: FDA-Public Use
  Company Number: US-KOREA IPSEN Pharma-2022-20053

PATIENT
  Age: 68 Year
  Sex: Female
  Weight: 42.18 kg

DRUGS (1)
  1. SOMATULINE DEPOT [Suspect]
     Active Substance: LANREOTIDE ACETATE
     Indication: Carcinoid syndrome
     Dosage: 120 MG EVERY 28 DAYS, 1 SYRINGE UPPER OUTER BUTTOCKS
     Route: 058
     Dates: start: 2015

REACTIONS (8)
  - Carcinoid crisis [Not Recovered/Not Resolved]
  - Neoplasm [Unknown]
  - Gallbladder disorder [Recovered/Resolved]
  - Abdominal pain [Recovering/Resolving]
  - Injection site mass [Not Recovered/Not Resolved]
  - Anxiety [Unknown]
  - Weight decreased [Unknown]
  - Somnolence [Unknown]

NARRATIVE: CASE EVENT DATE: 20220701
